FAERS Safety Report 21932725 (Version 2)
Quarter: 2025Q1

REPORT INFORMATION
  Report Type: Spontaneous
  Country: GB (occurrence: GB)
  Receive Date: 20230131
  Receipt Date: 20250107
  Transmission Date: 20250409
  Serious: Yes (Life-Threatening)
  Sender: BAYER HEALTHCARE PHARMACEUTICALS INC.
  Company Number: None

PATIENT
  Age: 82 Year
  Sex: Female

DRUGS (15)
  1. ESTRADIOL [Suspect]
     Active Substance: ESTRADIOL
  2. AMOXICILLIN [Concomitant]
     Active Substance: AMOXICILLIN
     Dosage: 500 MG, TID
     Dates: start: 20220701
  3. ASPIRIN [Concomitant]
     Active Substance: ASPIRIN
     Dates: start: 20220701
  4. BISOPROLOL [Concomitant]
     Active Substance: BISOPROLOL
     Dosage: 1.25 MG, QD
     Dates: start: 20220701
  5. DOXAZOSIN [Concomitant]
     Active Substance: DOXAZOSIN MESYLATE
     Dosage: 2 MG, QD
     Dates: start: 20220701
  6. EDOXABAN [Concomitant]
     Active Substance: EDOXABAN
     Dosage: 60 MG, QD
     Dates: start: 20220701
  7. OMEPRAZOLE [Concomitant]
     Active Substance: OMEPRAZOLE
     Dosage: 20 MG, QD
  8. ACETAMINOPHEN\DIHYDROCODEINE BITARTRATE [Concomitant]
     Active Substance: ACETAMINOPHEN\DIHYDROCODEINE BITARTRATE
  9. ACETAMINOPHEN [Concomitant]
     Active Substance: ACETAMINOPHEN
     Indication: Pain
     Dates: start: 20220701
  10. PHOLCODINE [Concomitant]
     Active Substance: PHOLCODINE
     Dates: start: 20220701
  11. ROSUVASTATIN [Concomitant]
     Active Substance: ROSUVASTATIN
     Dosage: 5 MG, QD
     Dates: start: 20220701
  12. TRAMADOL [Concomitant]
     Active Substance: TRAMADOL
  13. VAGIFEM [Concomitant]
     Active Substance: ESTRADIOL
  14. POTASSIUM BICARBONATE\SODIUM ALGINATE [Concomitant]
     Active Substance: POTASSIUM BICARBONATE\SODIUM ALGINATE
  15. CO-AMILOZIDE VANNIER [Concomitant]
     Dosage: 1 DF, QD
     Dates: start: 20220701

REACTIONS (2)
  - Ischaemic stroke [Unknown]
  - Vertebrobasilar insufficiency [Unknown]
